FAERS Safety Report 11843573 (Version 1)
Quarter: 2015Q4

REPORT INFORMATION
  Report Type: Spontaneous
  Country: BR (occurrence: BR)
  Receive Date: 20151217
  Receipt Date: 20151217
  Transmission Date: 20160305
  Serious: Yes (Other)
  Sender: FDA-Public Use
  Company Number: BR-AMGEN-BRASP2015120596

PATIENT
  Age: 58 Year
  Sex: Female
  Weight: 46 kg

DRUGS (19)
  1. METHOTREXATE [Concomitant]
     Active Substance: METHOTREXATE
     Dosage: UNK
     Dates: start: 20100428
  2. HYDROCHLOROTHIAZIDE. [Concomitant]
     Active Substance: HYDROCHLOROTHIAZIDE
     Dosage: UNK
  3. AAS [Concomitant]
     Active Substance: ASPIRIN
     Dosage: 1 TABLET (100MG) AFTER LUNCH
     Dates: start: 2008
  4. OMEPRAZOLE. [Concomitant]
     Active Substance: OMEPRAZOLE
     Indication: GASTRIC DISORDER
     Dosage: 1 TABLET IN THE MORNING
  5. ENALAPRIL MALEATE. [Concomitant]
     Active Substance: ENALAPRIL MALEATE
     Dosage: UNK
  6. ENBREL [Suspect]
     Active Substance: ETANERCEPT
     Indication: RHEUMATOID ARTHRITIS
     Dosage: 50 MG, ONCE WEEKLY
     Route: 058
     Dates: start: 20100428
  7. VITAMINS WITH MINERALS [Concomitant]
     Active Substance: MINERALS\VITAMINS
     Dosage: UNK, 1X/DAY
     Route: 065
     Dates: start: 2007
  8. PROTOS                             /00737201/ [Concomitant]
     Active Substance: STRONTIUM RANELATE
     Dosage: UNK
  9. PREDNISONE. [Concomitant]
     Active Substance: PREDNISONE
     Indication: RHEUMATOID ARTHRITIS
     Dosage: 5 MG, 1X/DAY
     Route: 065
     Dates: start: 1981
  10. AAS [Concomitant]
     Active Substance: ASPIRIN
     Dosage: 1 TABLET (100MG) ONCE DAILY
     Dates: start: 2008
  11. ENALAPRIL [Concomitant]
     Active Substance: ENALAPRIL
     Dosage: 5 MG, 1X/DAY
     Dates: start: 2007
  12. FOLIC ACID. [Concomitant]
     Active Substance: FOLIC ACID
     Dosage: 2 TABLET OF 5MG (10 MG) AFTER LUNCH
     Route: 065
  13. VITAMIN D3 [Concomitant]
     Active Substance: CHOLECALCIFEROL
     Dosage: UNK
  14. SIMVASTATIN. [Concomitant]
     Active Substance: SIMVASTATIN
     Indication: BLOOD CHOLESTEROL
     Dosage: 20 MG, UNK
  15. CHLOROTHIAZIDE. [Concomitant]
     Active Substance: CHLOROTHIAZIDE
     Dosage: 25 MG, 1X/DAY
     Dates: start: 2007
  16. DIPYRONE [Concomitant]
     Active Substance: DIPYRONE
     Dosage: 500MG AS NEEDED (WHEN PAIN)
  17. ALGINAC [Concomitant]
     Active Substance: CYANOCOBALAMIN\DICLOFENAC SODIUM\PYRIDOXINE HYDROCHLORIDE\THIAMINE MONONITRATE
     Dosage: 1000 MG, 1X/DAY
     Dates: start: 2007
  18. DIGESAN                            /00576701/ [Concomitant]
     Dosage: UNK
  19. DICLOFENAC SODIUM. [Concomitant]
     Active Substance: DICLOFENAC SODIUM
     Dosage: UNK

REACTIONS (6)
  - Injection site pain [Unknown]
  - Injection site haematoma [Unknown]
  - Product quality issue [Unknown]
  - Injection site erythema [Unknown]
  - Injection site pruritus [Unknown]
  - Infection [Unknown]

NARRATIVE: CASE EVENT DATE: 201111
